FAERS Safety Report 13142195 (Version 1)
Quarter: 2020Q3

REPORT INFORMATION
  Report Type: Report from Study
  Country: BY (occurrence: BY)
  Receive Date: 20170124
  Receipt Date: 20170124
  Transmission Date: 20201104
  Serious: Yes (Life-Threatening, Hospitalization)
  Sender: FDA-Public Use
  Company Number: BY-US WORLDMEDS, LLC-USW201610-000683

PATIENT
  Age: 56 Year
  Sex: Female
  Weight: 79 kg

DRUGS (6)
  1. BROMHEXINE [Concomitant]
     Active Substance: BROMHEXINE
     Indication: AMYOTROPHIC LATERAL SCLEROSIS
     Dates: start: 20160414
  2. MUCALTIN [Concomitant]
     Indication: AMYOTROPHIC LATERAL SCLEROSIS
     Dates: start: 20160414, end: 20160531
  3. ACETYLCYSTEINE. [Concomitant]
     Active Substance: ACETYLCYSTEINE
     Indication: AMYOTROPHIC LATERAL SCLEROSIS
     Dates: start: 20160414
  4. MYOBLOC [Suspect]
     Active Substance: RIMABOTULINUMTOXINB
     Route: 033
     Dates: start: 20160819, end: 20160819
  5. MYOBLOC [Suspect]
     Active Substance: RIMABOTULINUMTOXINB
     Indication: SALIVARY HYPERSECRETION
     Dates: start: 20160525
  6. RILUZOLE. [Concomitant]
     Active Substance: RILUZOLE
     Indication: AMYOTROPHIC LATERAL SCLEROSIS
     Dates: start: 20160301

REACTIONS (2)
  - Subarachnoid haemorrhage [Recovered/Resolved with Sequelae]
  - Respiratory failure [Not Recovered/Not Resolved]

NARRATIVE: CASE EVENT DATE: 20160930
